FAERS Safety Report 16073627 (Version 2)
Quarter: 2019Q2

REPORT INFORMATION
  Report Type: Spontaneous
  Country: US (occurrence: US)
  Receive Date: 20190314
  Receipt Date: 20190402
  Transmission Date: 20190711
  Serious: No
  Sender: FDA-Public Use
  Company Number: US-009507513-1903USA003432

PATIENT
  Sex: Female
  Weight: 68 kg

DRUGS (1)
  1. COZAAR [Suspect]
     Active Substance: LOSARTAN POTASSIUM
     Indication: BLOOD PRESSURE MEASUREMENT
     Dosage: UNK
     Route: 048

REACTIONS (3)
  - Feeling abnormal [Recovered/Resolved]
  - Therapeutic response unexpected [Unknown]
  - Depression [Recovered/Resolved]
